FAERS Safety Report 15131163 (Version 2)
Quarter: 2018Q3

REPORT INFORMATION
  Report Type: Spontaneous
  Country: DE (occurrence: DE)
  Receive Date: 20180711
  Receipt Date: 20180718
  Transmission Date: 20181010
  Serious: Yes (Death, Hospitalization)
  Sender: FDA-Public Use
  Company Number: DE-PFIZER INC-2018259854

PATIENT
  Sex: Male

DRUGS (1)
  1. SORTIS [Suspect]
     Active Substance: ATORVASTATIN
     Dosage: 10 MG, 1X/DAY (ALWAYS IN THE EVENING)
     Dates: end: 20180622

REACTIONS (3)
  - Hepatic enzyme increased [Unknown]
  - Chromaturia [Unknown]
  - Death [Fatal]
